FAERS Safety Report 7248028-0 (Version None)
Quarter: 2011Q1

REPORT INFORMATION
  Report Type: 
  Country: None (occurrence: None)
  Receive Date: 20110127
  Receipt Date: 20110112
  Transmission Date: 20110831
  Serious: Yes (Other)
  Sender: FDA-Public Use
  Company Number: JP-BAYER-2011-003713

PATIENT
  Age: 82 Year

DRUGS (3)
  1. NU-LOTAN [Suspect]
     Dosage: 50 MG, QD
     Route: 048
  2. AMARYL [Suspect]
     Dosage: 1 MG, QD
     Route: 048
  3. ACETYLSALICYLIC ACID SRT [Suspect]
     Dosage: 81 MG, QD
     Route: 048

REACTIONS (2)
  - DYSKINESIA [None]
  - HYPOGLYCAEMIA [None]
